APPROVED DRUG PRODUCT: PHYTONADIONE
Active Ingredient: PHYTONADIONE
Strength: 5MG
Dosage Form/Route: TABLET;ORAL
Application: A212112 | Product #001
Applicant: HIKMA PHARMACEUTICALS USA INC
Approved: Dec 19, 2024 | RLD: No | RS: No | Type: DISCN